FAERS Safety Report 13659214 (Version 1)
Quarter: 2017Q2

REPORT INFORMATION
  Report Type: Spontaneous
  Country: US (occurrence: US)
  Receive Date: 20170616
  Receipt Date: 20170616
  Transmission Date: 20170830
  Serious: Yes (Hospitalization)
  Sender: FDA-Public Use
  Company Number: None

PATIENT
  Age: 63 Year
  Sex: Male
  Weight: 112.9 kg

DRUGS (9)
  1. ASA [Concomitant]
     Active Substance: ASPIRIN
  2. NOVOLOG [Concomitant]
     Active Substance: INSULIN ASPART
  3. GLUCOPHAGE [Concomitant]
     Active Substance: METFORMIN HYDROCHLORIDE
  4. LIPITOR [Concomitant]
     Active Substance: ATORVASTATIN CALCIUM
  5. LISINOPRIL. [Concomitant]
     Active Substance: LISINOPRIL
  6. VANCOMYCIN [Suspect]
     Active Substance: VANCOMYCIN
     Indication: CELLULITIS
     Dosage: DATES OF USE - RECENT?1250MG Q12HRS IV
     Route: 042
  7. LOPRESSOR [Concomitant]
     Active Substance: METOPROLOL TARTRATE
  8. NPH INSULIN [Concomitant]
     Active Substance: INSULIN BEEF
  9. NEURONTIN [Concomitant]
     Active Substance: GABAPENTIN

REACTIONS (4)
  - Therapy cessation [None]
  - Acute kidney injury [None]
  - Renal tubular necrosis [None]
  - Toxicity to various agents [None]

NARRATIVE: CASE EVENT DATE: 20150808
